FAERS Safety Report 8384372-1 (Version None)
Quarter: 2012Q2

REPORT INFORMATION
  Report Type: 
  Country: None (occurrence: None)
  Receive Date: 20120524
  Receipt Date: 20120516
  Transmission Date: 20120825
  Serious: Yes (Hospitalization)
  Sender: FDA-Public Use
  Company Number: KR-ABBOTT-12P-090-0929337-00

PATIENT
  Age: 47 Year
  Sex: Male
  Weight: 53 kg

DRUGS (6)
  1. HUMIRA [Suspect]
     Indication: CROHN'S DISEASE
     Dosage: INDUCTION DOSE
     Route: 058
     Dates: start: 20110519
  2. PENTASA SR [Concomitant]
     Indication: CROHN'S DISEASE
     Route: 048
     Dates: start: 20101005
  3. LASIX [Concomitant]
     Indication: OEDEMA
     Route: 048
     Dates: start: 20110719, end: 20110726
  4. BIOFL [Concomitant]
     Indication: GASTROINTESTINAL DISORDER
     Route: 048
     Dates: start: 20030211
  5. HUMIRA [Suspect]
     Route: 058
     Dates: end: 20110602
  6. FEROBA SR [Concomitant]
     Indication: ANAEMIA
     Route: 048
     Dates: start: 20110719

REACTIONS (2)
  - SKIN LESION [None]
  - PERITONEAL ABSCESS [None]
